FAERS Safety Report 20913246 (Version 5)
Quarter: 2025Q3

REPORT INFORMATION
  Report Type: Report from Study
  Country: US (occurrence: US)
  Receive Date: 20220603
  Receipt Date: 20250710
  Transmission Date: 20251021
  Serious: Yes (Hospitalization, Other)
  Sender: JAZZ
  Company Number: US-JAZZ-2022-US-017961

PATIENT
  Age: 10 Year
  Sex: Female
  Weight: 27.211 kg

DRUGS (2)
  1. EPIDIOLEX [Suspect]
     Active Substance: CANNABIDIOL
     Indication: Lennox-Gastaut syndrome
     Dosage: 2.5 MILLILITER, BID
     Route: 048
     Dates: start: 20210504
  2. EPIDIOLEX [Suspect]
     Active Substance: CANNABIDIOL
     Indication: Partial seizures

REACTIONS (6)
  - Seizure [Unknown]
  - Seizure [Recovering/Resolving]
  - Disruptive mood dysregulation disorder [Unknown]
  - Hospitalisation [Unknown]
  - Emergency care [Unknown]
  - Off label use [Unknown]

NARRATIVE: CASE EVENT DATE: 20220501
